FAERS Safety Report 7141301-6 (Version None)
Quarter: 2010Q4

REPORT INFORMATION
  Report Type: 
  Country: None (occurrence: None)
  Receive Date: 20101203
  Receipt Date: 20101203
  Transmission Date: 20110411
  Serious: Yes (Hospitalization, Disabling)
  Sender: FDA-Public Use
  Company Number: None

PATIENT
  Age: 84 Year
  Sex: Male
  Weight: 76.87 kg

DRUGS (1)
  1. PRADAXA [Suspect]
     Indication: ATRIAL FIBRILLATION
     Dosage: 75MG TWICE DAILY PO
     Route: 048
     Dates: start: 20101120, end: 20101130

REACTIONS (2)
  - DIARRHOEA [None]
  - HAEMATOCHEZIA [None]
